FAERS Safety Report 7314196-5 (Version None)
Quarter: 2011Q1

REPORT INFORMATION
  Report Type: 
  Country: None (occurrence: None)
  Receive Date: 20110225
  Receipt Date: 20100625
  Transmission Date: 20110831
  Serious: No
  Sender: FDA-Public Use
  Company Number: US-MYLANLABS-2010S1009869

PATIENT
  Age: 21 Year
  Sex: Female
  Weight: 56 kg

DRUGS (1)
  1. AMNESTEEM [Suspect]
     Route: 048

REACTIONS (4)
  - MONONUCLEOSIS SYNDROME [None]
  - DEPRESSION [None]
  - CRYING [None]
  - NASOPHARYNGITIS [None]
